FAERS Safety Report 13329406 (Version 2)
Quarter: 2017Q2

REPORT INFORMATION
  Report Type: Spontaneous
  Country: US (occurrence: US)
  Receive Date: 20170313
  Receipt Date: 20170524
  Transmission Date: 20170830
  Serious: Yes (Disabling, Other)
  Sender: FDA-Public Use
  Company Number: US-REGENERON PHARMACEUTICALS, INC.-2016-25015

PATIENT

DRUGS (7)
  1. EYLEA [Suspect]
     Active Substance: AFLIBERCEPT
     Dosage: 2 MG MILLIGRAM(S), LEFT EYE; LAST DOSE PRIOR TO EVENT
     Route: 031
     Dates: start: 20161024, end: 20161024
  2. EYLEA [Suspect]
     Active Substance: AFLIBERCEPT
     Indication: NEOVASCULAR AGE-RELATED MACULAR DEGENERATION
     Dosage: 2 MG MILLIGRAM(S), LEFT EYE, ABOUT EVERY 35 DAYS
     Route: 031
     Dates: start: 201202
  3. METHOTREXATE. [Concomitant]
     Active Substance: METHOTREXATE
     Indication: PRODUCT USED FOR UNKNOWN INDICATION
     Dosage: 20 MG MILLIGRAM(S), WEEKLY
  4. ACETAMINOPHEN. [Concomitant]
     Active Substance: ACETAMINOPHEN
     Indication: PRODUCT USED FOR UNKNOWN INDICATION
     Dosage: 650MG TO 1800MG PER DAY AS NEEDED
  5. FOLIC ACID. [Concomitant]
     Active Substance: FOLIC ACID
     Indication: PRODUCT USED FOR UNKNOWN INDICATION
     Dosage: UNK
  6. CALCIUM W/VITAMIN D [Concomitant]
     Active Substance: CALCIUM\VITAMIN D
     Indication: PRODUCT USED FOR UNKNOWN INDICATION
     Dosage: UNK
  7. PRESERVISION [Concomitant]
     Active Substance: MINERALS\VITAMINS
     Indication: PRODUCT USED FOR UNKNOWN INDICATION
     Dosage: UNK
     Dates: start: 2006

REACTIONS (5)
  - Vision blurred [Unknown]
  - Vitrectomy [Recovered/Resolved]
  - Blindness transient [Recovered/Resolved]
  - Anterior chamber disorder [Unknown]
  - Endophthalmitis [Recovered/Resolved]

NARRATIVE: CASE EVENT DATE: 20161128
